FAERS Safety Report 7084745-3 (Version None)
Quarter: 2010Q4

REPORT INFORMATION
  Report Type: 
  Country: None (occurrence: None)
  Receive Date: 20101104
  Receipt Date: 20101103
  Transmission Date: 20110411
  Serious: Yes (Hospitalization)
  Sender: FDA-Public Use
  Company Number: US-ABBOTT-10P-163-0681694-00

PATIENT
  Sex: Male

DRUGS (1)
  1. HUMIRA [Suspect]
     Indication: ANKYLOSING SPONDYLITIS

REACTIONS (15)
  - BACK DISORDER [None]
  - CHEST PAIN [None]
  - CHROMATURIA [None]
  - COUGH [None]
  - DYSPNOEA [None]
  - HEADACHE [None]
  - MULTI-ORGAN FAILURE [None]
  - MYALGIA [None]
  - NAUSEA [None]
  - NECK PAIN [None]
  - PNEUMONIA LEGIONELLA [None]
  - PYREXIA [None]
  - SINUSITIS [None]
  - SPUTUM DISCOLOURED [None]
  - VOMITING [None]
